FAERS Safety Report 17514314 (Version 40)
Quarter: 2025Q2

REPORT INFORMATION
  Report Type: Report from Study
  Country: US (occurrence: US)
  Receive Date: 20200309
  Receipt Date: 20250526
  Transmission Date: 20250717
  Serious: Yes (Other)
  Sender: TAKEDA
  Company Number: US-SHIRE-US202008718

PATIENT
  Age: 69 Year
  Sex: Female
  Weight: 61 kg

DRUGS (61)
  1. HUMAN IMMUNOGLOBULIN G [Suspect]
     Active Substance: HUMAN IMMUNOGLOBULIN G
     Indication: Immunodeficiency common variable
  2. HUMAN IMMUNOGLOBULIN G [Suspect]
     Active Substance: HUMAN IMMUNOGLOBULIN G
  3. HUMAN IMMUNOGLOBULIN G [Suspect]
     Active Substance: HUMAN IMMUNOGLOBULIN G
  4. BENADRYL [Suspect]
     Active Substance: DIPHENHYDRAMINE HYDROCHLORIDE
     Indication: Product used for unknown indication
  5. AMOXICILLIN [Suspect]
     Active Substance: AMOXICILLIN
     Indication: Product used for unknown indication
  6. ACETAMINOPHEN\DEXTROMETHORPHAN\ETHENZAMIDE\TRIMEPRAZINE [Suspect]
     Active Substance: ACETAMINOPHEN\DEXTROMETHORPHAN\ETHENZAMIDE\TRIMEPRAZINE
     Indication: Product used for unknown indication
  7. VANADIUM [Suspect]
     Active Substance: VANADIUM
     Indication: Product used for unknown indication
  8. TITANIUM [Suspect]
     Active Substance: TITANIUM
     Indication: Product used for unknown indication
  9. PENICILLIN [Suspect]
     Active Substance: PENICILLIN
     Indication: Product used for unknown indication
  10. FARXIGA [Suspect]
     Active Substance: DAPAGLIFLOZIN PROPANEDIOL
     Indication: Product used for unknown indication
  11. ACETAMINOPHEN [Concomitant]
     Active Substance: ACETAMINOPHEN
  12. EPINEPHRINE [Concomitant]
     Active Substance: EPINEPHRINE
  13. FAMOTIDINE [Concomitant]
     Active Substance: FAMOTIDINE
  14. URIBEL [Concomitant]
     Active Substance: HYOSCYAMINE SULFATE\METHENAMINE\METHYLENE BLUE\PHENYL SALICYLATE\SODIUM PHOSPHATE, MONOBASIC, MONOHY
  15. VITAMIN B COMPLEX [Concomitant]
     Active Substance: CYANOCOBALAMIN\DEXPANTHENOL\NIACINAMIDE\PYRIDOXINE HYDROCHLORIDE\RIBOFLAVIN 5^-PHOSPHATE SODIUM\THIA
  16. DEPAKOTE [Concomitant]
     Active Substance: DIVALPROEX SODIUM
  17. SODIUM CHLORIDE [Concomitant]
     Active Substance: SODIUM CHLORIDE
  18. AMLODIPINE BESYLATE [Concomitant]
     Active Substance: AMLODIPINE BESYLATE
  19. PREMARIN [Concomitant]
     Active Substance: ESTROGENS, CONJUGATED
  20. ALLOPURINOL [Concomitant]
     Active Substance: ALLOPURINOL
  21. COENZYME Q10 [Concomitant]
     Active Substance: DIETARY SUPPLEMENT\UBIDECARENONE
  22. VITAMIN D3 [Concomitant]
     Active Substance: CHOLECALCIFEROL
  23. XANAX [Concomitant]
     Active Substance: ALPRAZOLAM
  24. LEVOFLOXACIN [Concomitant]
     Active Substance: LEVOFLOXACIN
  25. CLOBETASOL [Concomitant]
     Active Substance: CLOBETASOL
  26. DIPHENHYDRAMINE HYDROCHLORIDE [Concomitant]
     Active Substance: DIPHENHYDRAMINE HYDROCHLORIDE
  27. PFIZER-BIONTECH COVID-19 VACCINE [Concomitant]
     Active Substance: TOZINAMERAN
  28. HERBALS [Concomitant]
     Active Substance: HERBALS
  29. SODIUM CHLORIDE [Concomitant]
     Active Substance: SODIUM CHLORIDE
  30. ZOFRAN [Concomitant]
     Active Substance: ONDANSETRON HYDROCHLORIDE
  31. CIPROFLOXACIN [Concomitant]
     Active Substance: CIPROFLOXACIN
  32. DIPHENHYDRAMINE [Concomitant]
     Active Substance: DIPHENHYDRAMINE
  33. ZINC PICOLINATE [Concomitant]
     Active Substance: ZINC PICOLINATE
  34. LEVOTHYROXINE SODIUM [Concomitant]
     Active Substance: LEVOTHYROXINE SODIUM
  35. METFORMIN HYDROCHLORIDE [Concomitant]
     Active Substance: METFORMIN HYDROCHLORIDE
  36. OMEPRAZOLE [Concomitant]
     Active Substance: OMEPRAZOLE
  37. PREDNISONE [Concomitant]
     Active Substance: PREDNISONE
  38. WELLBUTRIN [Concomitant]
     Active Substance: BUPROPION HYDROCHLORIDE
  39. MENAQUINONE 6 [Concomitant]
     Active Substance: MENAQUINONE 6
  40. Hibiscus elatus [Concomitant]
  41. LEVOTHYROXINE [Concomitant]
     Active Substance: LEVOTHYROXINE
  42. FISH OIL [Concomitant]
     Active Substance: FISH OIL
  43. VITAMIN K [Concomitant]
     Active Substance: PHYTONADIONE
  44. BERBERINE [Concomitant]
     Active Substance: BERBERINE
  45. MAGNESIUM GLYCINATE [Concomitant]
     Active Substance: MAGNESIUM GLYCINATE
  46. HEPARIN [Concomitant]
     Active Substance: HEPARIN SODIUM
  47. Ester-c [Concomitant]
  48. Nac [Concomitant]
  49. TRIPLE MAGNESIUM COMPLEX [Concomitant]
  50. PROAIR HFA [Concomitant]
     Active Substance: ALBUTEROL SULFATE
     Indication: Product used for unknown indication
  51. ALPHA LIPOIC ACID [Concomitant]
     Active Substance: .ALPHA.-LIPOIC ACID
  52. BIOTIN [Concomitant]
     Active Substance: BIOTIN
  53. TRAZODONE [Concomitant]
     Active Substance: TRAZODONE HYDROCHLORIDE
  54. CHONDROITIN SULFATE (BOVINE)\DIMETHYL SULFONE\GLUCOSAMINE SULFATE [Concomitant]
     Active Substance: CHONDROITIN SULFATE (BOVINE)\DIMETHYL SULFONE\GLUCOSAMINE SULFATE
  55. BEE POLLEN [Concomitant]
     Active Substance: BEE POLLEN
  56. DEGLYCYRRHIZINISED LIQUORICE [Concomitant]
  57. LICORICE [Concomitant]
     Active Substance: LICORICE
  58. ONDANSETRON [Concomitant]
     Active Substance: ONDANSETRON
  59. Coq [Concomitant]
  60. SAMBUCUS NIGRA [Concomitant]
     Active Substance: HOMEOPATHICS
  61. CETIRIZINE HYDROCHLORIDE [Concomitant]
     Active Substance: CETIRIZINE HYDROCHLORIDE

REACTIONS (43)
  - Diabetes mellitus [Unknown]
  - Renal impairment [Unknown]
  - Chronic kidney disease [Unknown]
  - Renal injury [Unknown]
  - Gastroenteritis viral [Unknown]
  - Nasopharyngitis [Recovered/Resolved]
  - Blood potassium increased [Unknown]
  - Glomerular filtration rate abnormal [Unknown]
  - Neck pain [Unknown]
  - Poor venous access [Unknown]
  - Inflammation [Unknown]
  - Infusion related reaction [Unknown]
  - Tooth abscess [Unknown]
  - COVID-19 [Unknown]
  - Blood glucose increased [Unknown]
  - Eating disorder [Unknown]
  - Blood uric acid increased [Unknown]
  - Gingival abscess [Unknown]
  - Tooth infection [Unknown]
  - Gastrooesophageal reflux disease [Unknown]
  - Drug hypersensitivity [Unknown]
  - Viral infection [Unknown]
  - Urinary tract infection [Unknown]
  - Cystitis [Recovered/Resolved]
  - Brain fog [Unknown]
  - Bronchitis [Unknown]
  - Product dose omission issue [Unknown]
  - Upper respiratory tract infection [Unknown]
  - Feeling abnormal [Recovered/Resolved]
  - Somnolence [Unknown]
  - Insomnia [Unknown]
  - Blood creatinine increased [Unknown]
  - Blood pressure increased [Unknown]
  - Muscle spasms [Unknown]
  - Malaise [Unknown]
  - Abdominal pain upper [Unknown]
  - Back pain [Unknown]
  - Myalgia [Unknown]
  - Fatigue [Recovering/Resolving]
  - Headache [Recovering/Resolving]
  - Nausea [Recovering/Resolving]
  - Diarrhoea [Unknown]
  - Gastrointestinal disorder [Unknown]

NARRATIVE: CASE EVENT DATE: 20230629
